FAERS Safety Report 4635481-1 (Version None)
Quarter: 2005Q2

REPORT INFORMATION
  Report Type: 
  Country: None (occurrence: None)
  Receive Date: 20050413
  Receipt Date: 20050215
  Transmission Date: 20051028
  Serious: Yes (Hospitalization)
  Sender: FDA-Public Use
  Company Number: D01200501182

PATIENT
  Age: 83 Year
  Sex: Female
  Weight: 75 kg

DRUGS (6)
  1. HEPARIN [Suspect]
     Indication: ACUTE MYOCARDIAL INFARCTION
     Dosage: 2.5 MG - SUBCUTANEOUS
     Route: 058
     Dates: start: 20041021
  2. ACETYL SALICYLIC ACID USP BAT [Concomitant]
  3. NITRATES [Concomitant]
  4. DIPYRONE INJ [Concomitant]
  5. CEFAZOLIN [Concomitant]
  6. DIAZEPAM [Concomitant]

REACTIONS (2)
  - HAEMATOMA [None]
  - OVERDOSE [None]
